FAERS Safety Report 14728462 (Version 4)
Quarter: 2018Q2

REPORT INFORMATION
  Report Type: Report from Study
  Country: CA (occurrence: CA)
  Receive Date: 20180406
  Receipt Date: 20180620
  Transmission Date: 20180711
  Serious: Yes (Other)
  Sender: FDA-Public Use
  Company Number: CA-JNJFOC-20180344999

PATIENT
  Age: 49 Year
  Sex: Male
  Weight: 93 kg

DRUGS (1)
  1. STELARA [Suspect]
     Active Substance: USTEKINUMAB
     Indication: CROHN^S DISEASE
     Dosage: STRENGTH = 90 MG
     Route: 058
     Dates: start: 20171205

REACTIONS (7)
  - Crohn^s disease [Recovering/Resolving]
  - General physical health deterioration [Unknown]
  - Hyperhidrosis [Unknown]
  - Lethargy [Recovering/Resolving]
  - Dehydration [Unknown]
  - Drug ineffective [Unknown]
  - Loss of consciousness [Not Recovered/Not Resolved]

NARRATIVE: CASE EVENT DATE: 20171205
